FAERS Safety Report 6811365-5 (Version None)
Quarter: 2010Q2

REPORT INFORMATION
  Report Type: 
  Country: None (occurrence: None)
  Receive Date: 20100630
  Receipt Date: 20100113
  Transmission Date: 20101027
  Serious: Yes (Other)
  Sender: FDA-Public Use
  Company Number: US-AMGEN-QUU385635

PATIENT
  Age: 71 Year
  Sex: Female

DRUGS (2)
  1. EPOGEN [Suspect]
     Indication: DIALYSIS
     Dates: start: 20050101
  2. UNSPECIFIED MEDICATION [Concomitant]

REACTIONS (1)
  - MYOCARDIAL INFARCTION [None]
